FAERS Safety Report 7112745-3 (Version None)
Quarter: 2010Q4

REPORT INFORMATION
  Report Type: 
  Country: None (occurrence: None)
  Receive Date: 20101119
  Receipt Date: 20101115
  Transmission Date: 20110411
  Serious: Yes (Other)
  Sender: FDA-Public Use
  Company Number: FR-BRISTOL-MYERS SQUIBB COMPANY-15390743

PATIENT
  Age: 68 Year
  Sex: Female

DRUGS (2)
  1. COUMADIN [Suspect]
     Dates: start: 20101112
  2. INNOHEP [Concomitant]

REACTIONS (1)
  - NEUTROPENIA [None]
